FAERS Safety Report 9657898 (Version 1)
Quarter: 2013Q4

REPORT INFORMATION
  Report Type: Spontaneous
  Country: US (occurrence: US)
  Receive Date: 20131030
  Receipt Date: 20131030
  Transmission Date: 20140711
  Serious: Yes (Other)
  Sender: FDA-Public Use
  Company Number: US-B.I. PHARMACEUTICALS,INC./RIDGEFIELD-2013-BI-33998BP

PATIENT
  Sex: Female

DRUGS (1)
  1. DULCOLAX STOOL SOFTENER [Suspect]
     Indication: FAECES HARD
     Route: 048
     Dates: start: 2013

REACTIONS (1)
  - Breast cancer [Recovered/Resolved]
